FAERS Safety Report 23069246 (Version 1)
Quarter: 2023Q4

REPORT INFORMATION
  Report Type: Report from Study
  Country: HK (occurrence: None)
  Receive Date: 20231016
  Receipt Date: 20231016
  Transmission Date: 20240110
  Serious: Yes (Hospitalization)
  Sender: FDA-Public Use
  Company Number: 2023A228774

PATIENT
  Age: 65 Year
  Sex: Male
  Weight: 54.1 kg

DRUGS (27)
  1. CILGAVIMAB\TIXAGEVIMAB [Suspect]
     Active Substance: CILGAVIMAB\TIXAGEVIMAB
     Indication: COVID-19 prophylaxis
     Dosage: 600.0MG ONCE/SINGLE ADMINISTRATION
     Route: 030
     Dates: start: 20221125, end: 20221125
  2. ASPIRIN [Concomitant]
     Active Substance: ASPIRIN
     Indication: Mitral valve incompetence
     Route: 048
     Dates: start: 20230215, end: 20230505
  3. ACYCLOVIR [Concomitant]
     Active Substance: ACYCLOVIR
     Indication: Prophylaxis
     Route: 048
     Dates: start: 20220801
  4. AQUEOUS CREAM [Concomitant]
     Dosage: TWO TIMES A DAY
     Route: 061
     Dates: start: 20221209, end: 20230508
  5. BISOPROLOL FUMARATE [Concomitant]
     Active Substance: BISOPROLOL FUMARATE
     Indication: Hypertension
     Dosage: AS REQUIRED
     Route: 048
     Dates: start: 20230215, end: 20230805
  6. BENZYDAMINE HYDROCHLORIDE [Concomitant]
     Active Substance: BENZYDAMINE HYDROCHLORIDE
     Indication: Prophylaxis
     Route: 002
     Dates: start: 20221230, end: 20230628
  7. CALCIUM CARBONATE\VITAMIN D [Concomitant]
     Active Substance: CALCIUM CARBONATE\VITAMIN D
     Indication: Supplementation therapy
     Route: 048
     Dates: start: 20220210
  8. CHLORPHENIRAMINE [Concomitant]
     Active Substance: CHLORPHENIRAMINE
     Route: 048
     Dates: start: 20220210
  9. CLOTRIMAZOLE [Concomitant]
     Active Substance: CLOTRIMAZOLE
     Dosage: AS REQUIRED
     Route: 061
     Dates: start: 20230222
  10. DIGOXIN [Concomitant]
     Active Substance: DIGOXIN
     Dosage: AS REQUIRED
     Route: 048
     Dates: start: 20230215
  11. ENTECAVIR [Concomitant]
     Active Substance: ENTECAVIR
     Indication: Hepatitis B
     Route: 048
     Dates: start: 20220801
  12. FAMOTIDINE [Concomitant]
     Active Substance: FAMOTIDINE
     Indication: Prophylaxis
     Route: 048
     Dates: start: 20210708, end: 20230626
  13. FAKTU [Concomitant]
     Dosage: AS REQUIRED
     Route: 054
     Dates: start: 20230112
  14. NITROGLYCERIN [Concomitant]
     Active Substance: NITROGLYCERIN
     Indication: Coronary artery disease
     Route: 060
     Dates: start: 20230221
  15. HEPARINOID CREAM [Concomitant]
     Dosage: THREE TIMES A DAY
     Route: 061
     Dates: start: 20210708, end: 20230508
  16. LACTULOSE [Concomitant]
     Active Substance: LACTULOSE
     Dosage: AS REQUIRED
     Route: 048
     Dates: start: 20220722
  17. LOSARTAN POTASSIUM [Concomitant]
     Active Substance: LOSARTAN POTASSIUM
     Indication: Hypertension
     Dosage: AS REQUIRED
     Route: 048
     Dates: start: 20210708
  18. MELATONIN [Concomitant]
     Active Substance: MELATONIN
     Route: 048
     Dates: start: 20230203, end: 20230624
  19. ACETAMINOPHEN [Concomitant]
     Active Substance: ACETAMINOPHEN
     Dosage: AS REQUIRED
     Route: 048
     Dates: start: 20210708
  20. ALBUTEROL SULFATE [Concomitant]
     Active Substance: ALBUTEROL SULFATE
     Dosage: AS REQUIRED
     Route: 055
     Dates: start: 20220801, end: 20230526
  21. SENNA [Concomitant]
     Active Substance: SENNA LEAF\SENNOSIDES\SENNOSIDES A AND B
     Indication: Supplementation therapy
     Dosage: AS REQUIRED
     Route: 048
     Dates: start: 20220722
  22. SPIRONOLACTONE [Concomitant]
     Active Substance: SPIRONOLACTONE
     Indication: Hypertension
     Dosage: AS REQUIRED
     Route: 048
     Dates: start: 20230307, end: 20230713
  23. TAMSULOSIN HYDROCHLORIDE [Concomitant]
     Active Substance: TAMSULOSIN HYDROCHLORIDE
     Route: 048
     Dates: start: 20230303, end: 20230818
  24. FEXOFENADINE HYDROCHLORIDE\PSEUDOEPHEDRINE HYDROCHLORIDE [Concomitant]
     Active Substance: FEXOFENADINE HYDROCHLORIDE\PSEUDOEPHEDRINE HYDROCHLORIDE
     Route: 048
     Dates: start: 20210708
  25. TINZAPARIN SODIUM [Concomitant]
     Active Substance: TINZAPARIN SODIUM
     Dosage: 10000AXA IU
     Dates: start: 20220706, end: 20230506
  26. TRAMADOL HCL [Concomitant]
     Active Substance: TRAMADOL HYDROCHLORIDE
     Route: 048
     Dates: start: 20211230
  27. ZOPICLONE [Concomitant]
     Active Substance: ZOPICLONE
     Route: 048
     Dates: start: 20230112

REACTIONS (2)
  - Dyspnoea [Recovered/Resolved]
  - Coronary artery disease [Recovered/Resolved]

NARRATIVE: CASE EVENT DATE: 20230323
